FAERS Safety Report 8073042-5 (Version None)
Quarter: 2012Q1

REPORT INFORMATION
  Report Type: 
  Country: None (occurrence: None)
  Receive Date: 20120126
  Receipt Date: 20120116
  Transmission Date: 20120608
  Serious: Yes (Hospitalization)
  Sender: FDA-Public Use
  Company Number: GB-UCBSA-049737

PATIENT
  Age: 18 Year
  Sex: Female

DRUGS (2)
  1. GREEN TEA [Suspect]
  2. KEPPRA [Suspect]
     Indication: EPILEPSY
     Dosage: 500 MG

REACTIONS (3)
  - DRUG INEFFECTIVE [None]
  - FEELING ABNORMAL [None]
  - CONVULSION [None]
